FAERS Safety Report 17596473 (Version 1)
Quarter: 2020Q1

REPORT INFORMATION
  Report Type: Report from Study
  Country: US (occurrence: US)
  Receive Date: 20200330
  Receipt Date: 20200330
  Transmission Date: 20200409
  Serious: Yes (Other)
  Sender: FDA-Public Use
  Company Number: US-BEH-2020114841

PATIENT
  Age: 67 Year
  Sex: Male

DRUGS (3)
  1. HAEMATE P [Suspect]
     Active Substance: ANTIHEMOPHILIC FACTOR HUMAN
     Indication: VON WILLEBRAND^S DISEASE
     Dosage: UNK
     Route: 065
     Dates: start: 2014, end: 2017
  2. VONVENDI [Concomitant]
     Active Substance: VON WILLEBRAND FACTOR (RECOMBINANT)
     Indication: VON WILLEBRAND^S DISEASE
     Dosage: 7500 INTERNATIONAL UNIT, QOD
     Route: 042
     Dates: start: 2017
  3. HAEMATE P [Suspect]
     Active Substance: ANTIHEMOPHILIC FACTOR HUMAN
     Indication: VON WILLEBRAND^S DISEASE
     Dosage: UNK
     Route: 065
     Dates: start: 2014, end: 2017

REACTIONS (5)
  - Unevaluable event [Unknown]
  - Hepatitis C [Recovered/Resolved]
  - Coagulation factor VIII level increased [Unknown]
  - Suspected transmission of an infectious agent via product [Recovered/Resolved]
  - Hepatic cancer [Unknown]

NARRATIVE: CASE EVENT DATE: 2017
